FAERS Safety Report 19000885 (Version 1)
Quarter: 2021Q1

REPORT INFORMATION
  Report Type: Spontaneous
  Country: US (occurrence: US)
  Receive Date: 20210312
  Receipt Date: 20210312
  Transmission Date: 20210420
  Serious: No
  Sender: FDA-Public Use
  Company Number: US-GLAXOSMITHKLINE-USCH2021012091

PATIENT
  Age: 95 Year
  Sex: Female

DRUGS (1)
  1. VOLTAREN ARTHRITIS PAIN [Suspect]
     Active Substance: DICLOFENAC SODIUM
     Indication: ARTHRITIS
     Dosage: UNKNOWN
     Route: 065
     Dates: start: 20210303, end: 20210308

REACTIONS (1)
  - Product use issue [Recovering/Resolving]

NARRATIVE: CASE EVENT DATE: 20210303
